FAERS Safety Report 25465837 (Version 2)
Quarter: 2025Q4

REPORT INFORMATION
  Report Type: Spontaneous
  Country: US (occurrence: US)
  Receive Date: 20250623
  Receipt Date: 20251009
  Transmission Date: 20260119
  Serious: No
  Sender: TOLMAR
  Company Number: US-Tolmar-TLM-2025-03802

PATIENT

DRUGS (2)
  1. ELIGARD [Suspect]
     Active Substance: LEUPROLIDE ACETATE
     Indication: Product used for unknown indication
     Dosage: EXPIRATION DATE: SEP-2026; UNK; UNK?SN: 3551503859496?GTIN: 00362935227106
  2. DEVICE [Suspect]
     Active Substance: DEVICE
     Indication: Product used for unknown indication

REACTIONS (1)
  - Intentional dose omission [Unknown]
